FAERS Safety Report 10602740 (Version 1)
Quarter: 2014Q4

REPORT INFORMATION
  Report Type: Spontaneous
  Country: US (occurrence: US)
  Receive Date: 20141124
  Receipt Date: 20141124
  Transmission Date: 20150529
  Serious: Yes (Hospitalization)
  Sender: FDA-Public Use
  Company Number: US-UPSHER-SMITH LABORATORIES, INC.-14003453

PATIENT
  Age: 81 Year
  Sex: Female

DRUGS (11)
  1. DIOVAN [Concomitant]
     Active Substance: VALSARTAN
     Indication: HYPERTENSION
     Dosage: 160 MG, QD
  2. JANTOVEN [Suspect]
     Active Substance: WARFARIN SODIUM
     Indication: MITRAL VALVE DISEASE
     Dosage: 7.5 MG, TWO DAYS PER WEEK
     Route: 048
     Dates: start: 201410, end: 20141111
  3. PAXIL [Concomitant]
     Active Substance: PAROXETINE HYDROCHLORIDE
     Indication: DEPRESSED MOOD
     Dosage: 20 MG, QD
  4. ARICEPT [Concomitant]
     Active Substance: DONEPEZIL HYDROCHLORIDE
     Indication: DEMENTIA ALZHEIMER^S TYPE
     Dosage: 5 MG, QD
  5. LOPID [Concomitant]
     Active Substance: GEMFIBROZIL
     Indication: BLOOD CHOLESTEROL INCREASED
     Dosage: 600 MG, BID
  6. JANTOVEN [Suspect]
     Active Substance: WARFARIN SODIUM
     Indication: MITRAL VALVE DISEASE
     Dosage: 5 MG, FIVE DAYS PER WEEK
     Route: 048
     Dates: start: 201410, end: 20141111
  7. SOTALOL. [Concomitant]
     Active Substance: SOTALOL
     Indication: BLOOD PRESSURE
     Dosage: 120 MG, BID
  8. SYNTHROID [Concomitant]
     Active Substance: LEVOTHYROXINE SODIUM
     Indication: HYPOTHYROIDISM
     Dosage: 112 MCG, QD
  9. CRESTOR [Concomitant]
     Active Substance: ROSUVASTATIN CALCIUM
     Indication: BLOOD CHOLESTEROL INCREASED
     Dosage: 10 MG, QD
  10. PREMARIN [Concomitant]
     Active Substance: ESTROGENS, CONJUGATED
     Dosage: 0.625 MG, QD
  11. JANTOVEN [Suspect]
     Active Substance: WARFARIN SODIUM
     Indication: MITRAL VALVE DISEASE
     Dosage: 4 MG, QD
     Route: 048
     Dates: start: 20141116, end: 20141117

REACTIONS (3)
  - International normalised ratio increased [Unknown]
  - Pain in extremity [Unknown]
  - Petechiae [Recovered/Resolved]

NARRATIVE: CASE EVENT DATE: 20141110
